FAERS Safety Report 9347098 (Version 4)
Quarter: 2013Q3

REPORT INFORMATION
  Report Type: Report from Study
  Country: JP (occurrence: JP)
  Receive Date: 20130613
  Receipt Date: 20130806
  Transmission Date: 20140515
  Serious: Yes (Life-Threatening, Hospitalization)
  Sender: FDA-Public Use
  Company Number: JP-GLAXOSMITHKLINE-B0898019A

PATIENT
  Age: 27 Year
  Sex: Male
  Weight: 55 kg

DRUGS (5)
  1. VOTRIENT [Suspect]
     Indication: SOFT TISSUE CANCER
     Dosage: 800MG PER DAY
     Route: 048
     Dates: start: 20130522, end: 20130602
  2. VOTRIENT [Suspect]
     Indication: SOFT TISSUE CANCER
     Dosage: 800MG PER DAY
     Route: 048
     Dates: start: 20130613, end: 20130613
  3. OXYCONTIN [Concomitant]
     Indication: CANCER PAIN
     Dosage: 10MG TWICE PER DAY
     Route: 048
     Dates: start: 20130506, end: 20130602
  4. PANTOSIN [Concomitant]
     Indication: CONSTIPATION
     Dosage: 100MG THREE TIMES PER DAY
     Route: 048
     Dates: start: 20130506, end: 20130602
  5. MAGMITT [Concomitant]
     Indication: CONSTIPATION
     Dosage: 330MG THREE TIMES PER DAY
     Route: 048
     Dates: start: 20130506, end: 20130602

REACTIONS (5)
  - Gastrointestinal perforation [Not Recovered/Not Resolved]
  - Peritonitis [Recovered/Resolved]
  - Pyrexia [Recovered/Resolved]
  - Diarrhoea [Recovered/Resolved]
  - Malaise [Not Recovered/Not Resolved]
